FAERS Safety Report 4341905-X (Version None)
Quarter: 2004Q2

REPORT INFORMATION
  Report Type: 
  Country: None (occurrence: None)
  Receive Date: 20040420
  Receipt Date: 20040413
  Transmission Date: 20050107
  Serious: Yes (Death, Hospitalization)
  Sender: FDA-Public Use
  Company Number: SE-BRISTOL-MYERS SQUIBB COMPANY-12561676

PATIENT
  Age: 40 Year
  Sex: Female

DRUGS (7)
  1. GLUCOPHAGE [Suspect]
     Indication: DIABETES MELLITUS NON-INSULIN-DEPENDENT
     Route: 048
     Dates: start: 20011023, end: 20031219
  2. LEPONEX [Suspect]
     Indication: SCHIZOPHRENIA
     Route: 048
     Dates: end: 20031219
  3. ZANTAC [Concomitant]
     Route: 048
  4. AKINETON [Concomitant]
     Route: 048
  5. THERALEN [Concomitant]
     Route: 048
  6. GLYBURIDE [Concomitant]
     Route: 048
  7. NOVOMIX [Concomitant]

REACTIONS (3)
  - CARDIAC ARREST [None]
  - LACTIC ACIDOSIS [None]
  - RENAL FAILURE [None]
